FAERS Safety Report 4680821-0 (Version None)
Quarter: 2005Q2

REPORT INFORMATION
  Report Type: 
  Country: None (occurrence: None)
  Receive Date: 20050603
  Receipt Date: 20040830
  Transmission Date: 20051028
  Serious: Yes (Death)
  Sender: FDA-Public Use
  Company Number: US-ABBOTT-04P-163-0272093-00

PATIENT
  Sex: Female

DRUGS (11)
  1. HUMIRA [Suspect]
     Indication: RHEUMATOID ARTHRITIS
     Route: 058
     Dates: start: 20040501
  2. HUMIRA [Suspect]
  3. LEVOTHYROXINE SODIUM [Concomitant]
     Indication: THYROID DISORDER
     Route: 048
  4. DYAZIDE [Concomitant]
     Indication: HYPERTENSION
     Route: 048
  5. METHADONE [Concomitant]
     Indication: PAIN
     Route: 048
  6. HYDROCODONE [Concomitant]
     Indication: PAIN
     Route: 048
     Dates: start: 20030101
  7. LEFLUNOMIDE [Concomitant]
     Indication: RHEUMATOID ARTHRITIS
     Route: 048
  8. PREDNISONE [Concomitant]
     Indication: RHEUMATOID ARTHRITIS
     Route: 048
  9. RABEPRAZOLE SODIUM [Concomitant]
     Indication: DRUG USE FOR UNKNOWN INDICATION
     Route: 048
  10. ALENDRONATE SODIUM [Concomitant]
     Indication: BONE DENSITY DECREASED
     Route: 048
  11. BUCINDOLOL HYDROCHLORIDE [Concomitant]
     Indication: RHEUMATOID ARTHRITIS
     Route: 048

REACTIONS (1)
  - PNEUMONIA [None]
